FAERS Safety Report 5455629-9 (Version None)
Quarter: 2007Q3

REPORT INFORMATION
  Report Type: 
  Country: None (occurrence: None)
  Receive Date: 20070914
  Receipt Date: 20070904
  Transmission Date: 20080115
  Serious: Yes (Other)
  Sender: FDA-Public Use
  Company Number: 07-001808

PATIENT
  Age: 69 Year
  Sex: Female

DRUGS (8)
  1. ESTRACE [Suspect]
     Indication: ATROPHIC VULVOVAGINITIS
     Dosage: 0.01%, 1 APPLICATOR FULL 2X WEEK, VAGINAL
     Route: 067
  2. ESTRACE [Suspect]
     Indication: PAIN
     Dosage: 0.01%, 1 APPLICATOR FULL 2X WEEK, VAGINAL
     Route: 067
  3. COUMADIN [Concomitant]
  4. ASPIRIN [Concomitant]
  5. AMANTADINE HCL [Concomitant]
  6. LIPITOR [Concomitant]
  7. HYDROCHLOROTHIAZIDE [Concomitant]
  8. PREVACID [Concomitant]

REACTIONS (4)
  - DEEP VEIN THROMBOSIS [None]
  - DRUG ADMINISTRATION ERROR [None]
  - INCORRECT ROUTE OF DRUG ADMINISTRATION [None]
  - STOMATITIS [None]
